FAERS Safety Report 25110497 (Version 2)
Quarter: 2025Q2

REPORT INFORMATION
  Report Type: Spontaneous
  Country: US (occurrence: US)
  Receive Date: 20250324
  Receipt Date: 20250515
  Transmission Date: 20250717
  Serious: No
  Sender: ROCHE
  Company Number: US-ROCHE-10000229202

PATIENT
  Age: 79 Year
  Sex: Male

DRUGS (30)
  1. ERIVEDGE [Suspect]
     Active Substance: VISMODEGIB
     Indication: Basal cell carcinoma
     Route: 048
     Dates: start: 20191113, end: 20250325
  2. ERIVEDGE [Suspect]
     Active Substance: VISMODEGIB
     Route: 048
  3. ASPIRIN [Concomitant]
     Active Substance: ASPIRIN
  4. ASPIRIN [Concomitant]
     Active Substance: ASPIRIN
  5. EZETIMIBE [Concomitant]
     Active Substance: EZETIMIBE
  6. EZETIMIBE [Concomitant]
     Active Substance: EZETIMIBE
  7. FAMOTIDINE [Concomitant]
     Active Substance: FAMOTIDINE
  8. FAMOTIDINE [Concomitant]
     Active Substance: FAMOTIDINE
  9. FISH OIL [Concomitant]
     Active Substance: FISH OIL
  10. FISH OIL [Concomitant]
     Active Substance: FISH OIL
  11. INVOKANA [Concomitant]
     Active Substance: CANAGLIFLOZIN
  12. INVOKANA [Concomitant]
     Active Substance: CANAGLIFLOZIN
  13. LEVOTHYROXINE [Concomitant]
     Active Substance: LEVOTHYROXINE
  14. LEVOTHYROXINE [Concomitant]
     Active Substance: LEVOTHYROXINE
  15. LOSARTAN POTASSIUM [Concomitant]
     Active Substance: LOSARTAN POTASSIUM
  16. LOSARTAN POTASSIUM [Concomitant]
     Active Substance: LOSARTAN POTASSIUM
  17. PIOGLITAZONE [Concomitant]
     Active Substance: PIOGLITAZONE
  18. PIOGLITAZONE [Concomitant]
     Active Substance: PIOGLITAZONE
  19. ROSUVASTATIN [Concomitant]
     Active Substance: ROSUVASTATIN
  20. ROSUVASTATIN [Concomitant]
     Active Substance: ROSUVASTATIN
  21. TAMSULOSINE H [Concomitant]
  22. TAMSULOSINE H [Concomitant]
  23. TESTOSTERONE [Concomitant]
     Active Substance: TESTOSTERONE
  24. TESTOSTERONE [Concomitant]
     Active Substance: TESTOSTERONE
  25. TRULICITY SOA [Concomitant]
  26. TRULICITY SOA [Concomitant]
  27. VITAMIN B12 [Concomitant]
     Active Substance: CYANOCOBALAMIN
  28. VITAMIN B12 [Concomitant]
     Active Substance: CYANOCOBALAMIN
  29. VITAMIN D [Concomitant]
     Active Substance: VITAMIN D NOS
  30. VITAMIN D [Concomitant]
     Active Substance: VITAMIN D NOS

REACTIONS (6)
  - Malaise [Not Recovered/Not Resolved]
  - Ill-defined disorder [Not Recovered/Not Resolved]
  - Ageusia [Not Recovered/Not Resolved]
  - Decreased appetite [Not Recovered/Not Resolved]
  - Fatigue [Not Recovered/Not Resolved]
  - Weight decreased [Unknown]

NARRATIVE: CASE EVENT DATE: 20250301
